FAERS Safety Report 25941644 (Version 1)
Quarter: 2025Q4

REPORT INFORMATION
  Report Type: Report from Study
  Country: CN (occurrence: CN)
  Receive Date: 20251020
  Receipt Date: 20251020
  Transmission Date: 20260117
  Serious: Yes (Death)
  Sender: PFIZER
  Company Number: CN-PFIZER INC-PV202500121952

PATIENT

DRUGS (4)
  1. CYTARABINE [Suspect]
     Active Substance: CYTARABINE
     Indication: Acute myeloid leukaemia refractory
     Dosage: 10 MG/M2, 2X/DAY  (IH, D6-12)
  2. DECITABINE [Suspect]
     Active Substance: DECITABINE
     Indication: Acute myeloid leukaemia refractory
     Dosage: 20 MG/M2, DAILY (FOR 5 CONSECUTIVE DAYS
     Route: 042
  3. ACLARUBICIN [Suspect]
     Active Substance: ACLARUBICIN
     Indication: Acute myeloid leukaemia refractory
     Dosage: 14 MG/M2, 1X/DAY (IVD, D6-9)
     Route: 042
  4. GRANULOCYTE COLONY-STIMULATING FACTOR NOS [Suspect]
     Active Substance: GRANULOCYTE COLONY-STIMULATING FACTOR NOS
     Indication: Acute myeloid leukaemia refractory
     Dosage: 300 UG, 1X/DAY  (IH, D6-12)

REACTIONS (2)
  - Pneumonia [Fatal]
  - Respiratory failure [Fatal]
